FAERS Safety Report 5605280-2 (Version None)
Quarter: 2008Q1

REPORT INFORMATION
  Report Type: 
  Country: None (occurrence: None)
  Receive Date: 20080129
  Receipt Date: 20080117
  Transmission Date: 20080703
  Serious: Yes (Other)
  Sender: FDA-Public Use
  Company Number: ES-PFIZER INC-2005120946

PATIENT
  Sex: Male

DRUGS (7)
  1. SOGILEN [Suspect]
     Indication: PARKINSON'S DISEASE
     Dosage: FREQ:DAILY
     Route: 048
     Dates: start: 20021201, end: 20050727
  2. AMANTADINE HCL [Concomitant]
  3. DILUTOL [Concomitant]
  4. MOTILIUM [Concomitant]
  5. SINEMET [Concomitant]
     Route: 048
  6. STALEVO 100 [Concomitant]
     Route: 048
  7. BESITRAN [Concomitant]
     Route: 048

REACTIONS (3)
  - AORTIC VALVE INCOMPETENCE [None]
  - MITRAL VALVE INCOMPETENCE [None]
  - PULMONARY HYPERTENSION [None]
